FAERS Safety Report 11917127 (Version 1)
Quarter: 2016Q1

REPORT INFORMATION
  Report Type: Spontaneous
  Country: US (occurrence: US)
  Receive Date: 20160114
  Receipt Date: 20160114
  Transmission Date: 20160526
  Serious: Yes (Other)
  Sender: FDA-Public Use
  Company Number: US-JNJFOC-20160107834

PATIENT
  Sex: Male

DRUGS (1)
  1. REMICADE [Suspect]
     Active Substance: INFLIXIMAB
     Indication: HIDRADENITIS
     Dosage: IN 2002 OR 2003
     Route: 042

REACTIONS (8)
  - Product use issue [Unknown]
  - Hair colour changes [Recovered/Resolved]
  - Cyst [Recovered/Resolved]
  - Hepatic pain [Recovered/Resolved]
  - Renal pain [Recovered/Resolved]
  - Neuropathy peripheral [Recovered/Resolved]
  - Weight increased [Unknown]
  - Off label use [Unknown]
